FAERS Safety Report 7850665-7 (Version None)
Quarter: 2011Q4

REPORT INFORMATION
  Report Type: 
  Country: None (occurrence: None)
  Receive Date: 20111026
  Receipt Date: 20111017
  Transmission Date: 20120403
  Serious: Yes (Other)
  Sender: FDA-Public Use
  Company Number: US-ASTRAZENECA-2011SE51504

PATIENT
  Age: 76 Year
  Sex: Female

DRUGS (4)
  1. NEXIUM [Suspect]
     Route: 048
  2. PREVACID [Concomitant]
  3. PEPCID [Concomitant]
  4. PRILOSEC [Suspect]
     Route: 048

REACTIONS (8)
  - GASTRIC DISORDER [None]
  - MALAISE [None]
  - CATARACT [None]
  - ARTHRITIS [None]
  - MACULAR DEGENERATION [None]
  - THYROID DISORDER [None]
  - DRUG DOSE OMISSION [None]
  - DRUG INEFFECTIVE [None]
